FAERS Safety Report 8535801-1 (Version None)
Quarter: 2012Q3

REPORT INFORMATION
  Report Type: 
  Country: None (occurrence: None)
  Receive Date: 20120725
  Receipt Date: 20120718
  Transmission Date: 20120928
  Serious: Yes (Death)
  Sender: FDA-Public Use
  Company Number: FR-UCBSA-046120

PATIENT
  Sex: Male

DRUGS (2)
  1. KEPPRA [Suspect]
     Route: 048
  2. TEMODAL [Concomitant]
     Route: 048

REACTIONS (1)
  - METASTATIC NEOPLASM [None]
